FAERS Safety Report 15507647 (Version 2)
Quarter: 2018Q4

REPORT INFORMATION
  Report Type: Spontaneous
  Country: ES (occurrence: ES)
  Receive Date: 20181016
  Receipt Date: 20181101
  Transmission Date: 20190205
  Serious: No
  Sender: FDA-Public Use
  Company Number: ES-ALLERGAN-UKP97000037

PATIENT
  Age: 64 Year
  Sex: Female

DRUGS (1)
  1. NO SUSPECT ALLERGAN PRODUCT [Suspect]
     Active Substance: UNSPECIFIED INGREDIENT
     Indication: CROHN^S DISEASE
     Dosage: 1 G, Q8HR
     Route: 048
     Dates: start: 19950201, end: 19950501

REACTIONS (1)
  - No adverse event [Unknown]
